FAERS Safety Report 4442250-4 (Version None)
Quarter: 2004Q3

REPORT INFORMATION
  Report Type: 
  Country: None (occurrence: None)
  Receive Date: 20040903
  Receipt Date: 20040718
  Transmission Date: 20050211
  Serious: Yes (Other)
  Sender: FDA-Public Use
  Company Number: 2004UW14826

PATIENT
  Age: 71 Year
  Sex: Male

DRUGS (5)
  1. TOPROL-XL [Suspect]
     Dosage: 100 MG QD PO
     Route: 048
  2. CRESTOR [Suspect]
  3. VOLTAREN [Suspect]
     Dosage: 75 MG QD PO
     Route: 048
  4. PREVACID [Suspect]
     Dosage: 30 MG QD PO
     Route: 048
  5. SYNTHROID [Suspect]
     Dosage: 0.2 MG QD

REACTIONS (2)
  - DYSURIA [None]
  - MUSCULAR WEAKNESS [None]
